FAERS Safety Report 16894754 (Version 1)
Quarter: 2019Q4

REPORT INFORMATION
  Report Type: Spontaneous
  Country: BR (occurrence: BR)
  Receive Date: 20191008
  Receipt Date: 20191008
  Transmission Date: 20200122
  Serious: Yes (Death, Other)
  Sender: FDA-Public Use
  Company Number: BR-PFIZER INC-2019410429

PATIENT
  Sex: Female

DRUGS (1)
  1. NORDETTE [Suspect]
     Active Substance: ETHINYL ESTRADIOL\LEVONORGESTREL
     Indication: CONTRACEPTION

REACTIONS (4)
  - Drug ineffective [Unknown]
  - Maternal exposure during pregnancy [Unknown]
  - Counterfeit product administered [Unknown]
  - Neoplasm malignant [Fatal]
